FAERS Safety Report 19254919 (Version 2)
Quarter: 2021Q3

REPORT INFORMATION
  Report Type: Spontaneous
  Country: CA (occurrence: CA)
  Receive Date: 20210513
  Receipt Date: 20210924
  Transmission Date: 20211014
  Serious: Yes (Death, Hospitalization, Other)
  Sender: FDA-Public Use
  Company Number: CA-AUROBINDO-AUR-APL-2021-018962

PATIENT
  Age: 24 Year
  Sex: Female

DRUGS (3)
  1. PARACETAMOL [Suspect]
     Active Substance: ACETAMINOPHEN
     Indication: PRODUCT USED FOR UNKNOWN INDICATION
     Dosage: 50 GRAM
     Route: 048
  2. MORPHINE [Suspect]
     Active Substance: MORPHINE
     Indication: PRODUCT USED FOR UNKNOWN INDICATION
     Dosage: 60 MILLIGRAM
     Route: 048
  3. GABAPENTIN. [Suspect]
     Active Substance: GABAPENTIN
     Indication: PRODUCT USED FOR UNKNOWN INDICATION
     Dosage: 25.5 GRAM
     Route: 048

REACTIONS (16)
  - Brain oedema [Fatal]
  - Death [Fatal]
  - Ileus [Fatal]
  - Lactic acidosis [Fatal]
  - Analgesic drug level increased [Fatal]
  - Hepatic failure [Fatal]
  - Hypoglycaemia [Fatal]
  - Diffuse axonal injury [Fatal]
  - Depressed level of consciousness [Fatal]
  - Encephalopathy [Fatal]
  - Mental status changes [Fatal]
  - Metabolic acidosis [Unknown]
  - Toxicity to various agents [Fatal]
  - Cerebral haemorrhage [Fatal]
  - Coagulopathy [Fatal]
  - Overdose [Fatal]
